FAERS Safety Report 25536470 (Version 2)
Quarter: 2025Q3

REPORT INFORMATION
  Report Type: Spontaneous
  Country: MX (occurrence: MX)
  Receive Date: 20250709
  Receipt Date: 20250710
  Transmission Date: 20251021
  Serious: Yes (Hospitalization)
  Sender: BOEHRINGER INGELHEIM
  Company Number: MX-BoehringerIngelheim-2025-BI-082023

PATIENT
  Age: 78 Year
  Sex: Male

DRUGS (3)
  1. OFEV [Suspect]
     Active Substance: NINTEDANIB
     Indication: Pulmonary fibrosis
     Dosage: DURING HOSPITALIZATION, THE TREATING PHYSICIAN RECOMMENDED LOWERING THE DOSE TO 1 EVERY 24 HOURS. THE REDUCTION WAS FOR ONLY SOME DAYS, AND THE DOCTOR ANNOUNCED TODAY TO RESTART WITH 02 DAILY.
     Dates: start: 20241112
  2. OFEV [Suspect]
     Active Substance: NINTEDANIB
     Dates: start: 20250701
  3. OFEV [Suspect]
     Active Substance: NINTEDANIB
     Dates: start: 20250709

REACTIONS (2)
  - Fall [Recovering/Resolving]
  - Diarrhoea [Unknown]

NARRATIVE: CASE EVENT DATE: 20250622
